FAERS Safety Report 10466131 (Version 2)
Quarter: 2014Q4

REPORT INFORMATION
  Report Type: Spontaneous
  Country: IT (occurrence: IT)
  Receive Date: 20140922
  Receipt Date: 20141111
  Transmission Date: 20150528
  Serious: Yes (Hospitalization)
  Sender: FDA-Public Use
  Company Number: IT-ACCORD-025990

PATIENT
  Age: 55 Year
  Sex: Female
  Weight: 80 kg

DRUGS (1)
  1. DOCETAXEL ACCORD [Suspect]
     Active Substance: DOCETAXEL
     Indication: BREAST CANCER
     Dosage: STRENGTH: 80 MG/4 ML, 1 VIAL, EXPIRY DATE: 31-MAR-2016. ATC: L01CD02. ADMINISTERED EVERY 21 DAYS
     Route: 042
     Dates: start: 20140903

REACTIONS (3)
  - Hyperhidrosis [Unknown]
  - Febrile neutropenia [Unknown]
  - Blister [Unknown]

NARRATIVE: CASE EVENT DATE: 20140910
